FAERS Safety Report 11248507 (Version 1)
Quarter: 2015Q3

REPORT INFORMATION
  Report Type: Spontaneous
  Country: US (occurrence: US)
  Receive Date: 20150708
  Receipt Date: 20150708
  Transmission Date: 20151125
  Serious: No
  Sender: FDA-Public Use
  Company Number: US-ELI_LILLY_AND_COMPANY-US200912001930

PATIENT
  Sex: Female

DRUGS (6)
  1. SYNTHROID [Concomitant]
     Active Substance: LEVOTHYROXINE SODIUM
     Dosage: 50 UG, DAILY (1/D)
     Route: 065
  2. PROZAC [Suspect]
     Active Substance: FLUOXETINE HYDROCHLORIDE
     Dosage: 10 MG, DAILY (1/D)
     Route: 065
     Dates: start: 200909, end: 200910
  3. PRAVASTATIN [Concomitant]
     Active Substance: PRAVASTATIN\PRAVASTATIN SODIUM
     Dosage: 40 MG, DAILY (1/D)
     Route: 065
  4. ATENOLOL. [Concomitant]
     Active Substance: ATENOLOL
     Dosage: 25 MG, DAILY (1/D)
     Route: 065
  5. PROZAC [Suspect]
     Active Substance: FLUOXETINE HYDROCHLORIDE
     Indication: DEPRESSION
     Dosage: 20 MG, DAILY (1/D)
     Route: 065
     Dates: start: 200808
  6. IBUPROFEN. [Concomitant]
     Active Substance: IBUPROFEN
     Indication: BACK PAIN
     Dosage: UNK, AS NEEDED
     Route: 065

REACTIONS (1)
  - Mood swings [Not Recovered/Not Resolved]
